FAERS Safety Report 18986357 (Version 1)
Quarter: 2021Q1

REPORT INFORMATION
  Report Type: Spontaneous
  Country: US (occurrence: US)
  Receive Date: 20210309
  Receipt Date: 20210309
  Transmission Date: 20210420
  Serious: Yes (Other)
  Sender: FDA-Public Use
  Company Number: US-AMERICAN REGENT INC-2021000589

PATIENT

DRUGS (2)
  1. NIMODIPINE. [Concomitant]
     Active Substance: NIMODIPINE
     Indication: CEREBRAL VASOCONSTRICTION
     Dosage: UNK
     Route: 048
  2. NICARDIPINE HYDROCHLORIDE INJECTION (0735?10) [Suspect]
     Active Substance: NICARDIPINE HYDROCHLORIDE
     Indication: CEREBRAL VASOCONSTRICTION
     Dosage: UNK
     Route: 037

REACTIONS (3)
  - Hydrocephalus [Unknown]
  - Incorrect route of product administration [Unknown]
  - Product use in unapproved indication [Unknown]
